FAERS Safety Report 8682193 (Version 2)
Quarter: 2012Q4

REPORT INFORMATION
  Report Type: Spontaneous
  Country: DK (occurrence: None)
  Receive Date: 20120710
  Receipt Date: 20120827
  Transmission Date: 20130627
  Serious: Yes (Disabling)
  Sender: FDA-Public Use
  Company Number: 2012MA008107

PATIENT
  Age: 3 Month
  Sex: Female

DRUGS (5)
  1. CARBOPLATIN [Suspect]
     Indication: PRODUCT USED FOR UNKNOWN INDICATION
     Dosage: X1, IV
     Route: 042
     Dates: start: 20120305, end: 20120305
  2. VINCRESTINE [Concomitant]
  3. ETOPOSIDE [Concomitant]
  4. DEXCHLORPHENIRAMINE [Concomitant]
  5. ZOFRAN [Concomitant]

REACTIONS (5)
  - Deafness bilateral [None]
  - Incorrect drug administration duration [None]
  - Wrong technique in drug usage process [None]
  - Drug level increased [None]
  - Drug dispensing error [None]
